FAERS Safety Report 4881321-5 (Version None)
Quarter: 2005Q4

REPORT INFORMATION
  Report Type: 
  Country: None (occurrence: None)
  Receive Date: 20051212
  Receipt Date: 20050914
  Transmission Date: 20060501
  Serious: Yes (Other)
  Sender: FDA-Public Use
  Company Number: 2005-01952

PATIENT
  Age: 36 Year
  Sex: Female

DRUGS (1)
  1. VELCADE [Suspect]
     Indication: HODGKIN'S DISEASE
     Dosage: 1.30 MG/M2

REACTIONS (3)
  - CONSTIPATION [None]
  - HERPES VIRUS INFECTION [None]
  - HYPONATRAEMIA [None]
